FAERS Safety Report 22091548 (Version 1)
Quarter: 2023Q1

REPORT INFORMATION
  Report Type: Spontaneous
  Country: BR (occurrence: BR)
  Receive Date: 20230314
  Receipt Date: 20230314
  Transmission Date: 20230418
  Serious: Yes (Other)
  Sender: FDA-Public Use
  Company Number: BR-002147023-NVSC2022BR258573

PATIENT
  Age: 45 Year
  Sex: Female
  Weight: 77 kg

DRUGS (4)
  1. FEMARA [Suspect]
     Active Substance: LETROZOLE
     Indication: Breast cancer
     Dosage: UNK, QD
     Route: 048
     Dates: start: 202103
  2. FEMARA [Suspect]
     Active Substance: LETROZOLE
     Dosage: UNK, QD
     Route: 048
     Dates: start: 202103
  3. FEMARA [Suspect]
     Active Substance: LETROZOLE
     Dosage: 1 DOSAGE FORM, QD
     Route: 065
     Dates: start: 202103
  4. ZOLADEX [Concomitant]
     Active Substance: GOSERELIN ACETATE
     Indication: Menstrual cycle management
     Dosage: 1 DOSAGE FORM, QMO (1 INJECTION)
     Dates: start: 202103, end: 202108

REACTIONS (3)
  - Hormone level abnormal [Recovered/Resolved]
  - Menstrual disorder [Recovered/Resolved]
  - Product dose omission in error [Unknown]

NARRATIVE: CASE EVENT DATE: 20220201
